FAERS Safety Report 10448751 (Version 1)
Quarter: 2014Q3

REPORT INFORMATION
  Report Type: Spontaneous
  Country: FR (occurrence: FR)
  Receive Date: 20140912
  Receipt Date: 20140912
  Transmission Date: 20150326
  Serious: Yes (Life-Threatening, Hospitalization, Disabling, Other)
  Sender: FDA-Public Use
  Company Number: FR-AUROBINDO-AUR-APL-2014-09671

PATIENT
  Age: 40 Year
  Sex: Female

DRUGS (2)
  1. CIPROFLOXACINE /00697201/ [Suspect]
     Active Substance: CIPROFLOXACIN
     Indication: PNEUMONIA
     Dosage: 400 MG, DAILY
     Route: 042
     Dates: start: 20140322, end: 20140323
  2. CIPROFLOXACIN HYDROCHLORIDE FILM-COATED TABLET 500MG [Suspect]
     Active Substance: CIPROFLOXACIN HYDROCHLORIDE
     Indication: PNEUMONIA
     Dosage: 500 MG, TWO TIMES A DAY
     Route: 048
     Dates: start: 20140324, end: 20140331

REACTIONS (11)
  - Neuralgia [Not Recovered/Not Resolved]
  - Tendonitis [Not Recovered/Not Resolved]
  - Musculoskeletal stiffness [Not Recovered/Not Resolved]
  - Gait disturbance [Recovering/Resolving]
  - Tendon pain [Not Recovered/Not Resolved]
  - Wheelchair user [Recovered/Resolved]
  - Burning sensation [Not Recovered/Not Resolved]
  - Muscular weakness [None]
  - Pain [Not Recovered/Not Resolved]
  - Paraesthesia [Not Recovered/Not Resolved]
  - Arthralgia [Not Recovered/Not Resolved]

NARRATIVE: CASE EVENT DATE: 20140331
